FAERS Safety Report 13679731 (Version 1)
Quarter: 2017Q2

REPORT INFORMATION
  Report Type: Spontaneous
  Country: FR (occurrence: FR)
  Receive Date: 20170622
  Receipt Date: 20170622
  Transmission Date: 20170830
  Serious: Yes (Hospitalization)
  Sender: FDA-Public Use
  Company Number: FR-TEVA-778131ROM

PATIENT
  Age: 88 Year
  Sex: Male

DRUGS (1)
  1. ALPRAZOLAM TEVA 0.25 MG [Suspect]
     Active Substance: ALPRAZOLAM
     Dosage: A HALF-TABLET IF REQUIRED THREE TIMES A DAY
     Route: 048
     Dates: start: 2009, end: 20100319

REACTIONS (1)
  - Coma [Recovered/Resolved]

NARRATIVE: CASE EVENT DATE: 20100319
